FAERS Safety Report 8933428 (Version 1)
Quarter: 2012Q4

REPORT INFORMATION
  Report Type: 
  Country: GB (occurrence: GB)
  Receive Date: 20121128
  Receipt Date: 20121128
  Transmission Date: 20130627
  Serious: Yes (Life-Threatening)
  Sender: FDA-Public Use
  Company Number: GB-CELGENEUS-167-21880-12113133

PATIENT
  Age: 74 Year
  Sex: Male
  Weight: 72.4 kg

DRUGS (1)
  1. REVLIMID [Suspect]
     Indication: DRUG USE FOR UNKNOWN INDICATION
     Route: 048
     Dates: start: 20110910, end: 20120910

REACTIONS (1)
  - Leukaemia [Not Recovered/Not Resolved]
